FAERS Safety Report 14607302 (Version 1)
Quarter: 2018Q1

REPORT INFORMATION
  Report Type: Spontaneous
  Country: US (occurrence: US)
  Receive Date: 20180307
  Receipt Date: 20180307
  Transmission Date: 20180509
  Serious: No
  Sender: FDA-Public Use
  Company Number: US-PFIZER INC-2018089184

PATIENT
  Sex: Female

DRUGS (1)
  1. ADVIL [Suspect]
     Active Substance: IBUPROFEN
     Dosage: 2 DF (2 CAPLETS), UNK

REACTIONS (2)
  - Expired product administered [Unknown]
  - Dizziness [Unknown]

NARRATIVE: CASE EVENT DATE: 201802
